FAERS Safety Report 13633150 (Version 1)
Quarter: 2017Q2

REPORT INFORMATION
  Report Type: Spontaneous
  Country: US (occurrence: US)
  Receive Date: 20170531
  Receipt Date: 20170531
  Transmission Date: 20170830
  Serious: No
  Sender: FDA-Public Use
  Company Number: US-ASTELLAS-1513317

PATIENT
  Sex: Female
  Weight: 41.31 kg

DRUGS (14)
  1. FLUCONAZOLE. [Concomitant]
     Active Substance: FLUCONAZOLE
     Route: 048
  2. PROCHLORPERAZINE. [Concomitant]
     Active Substance: PROCHLORPERAZINE
     Indication: VOMITING
  3. TARCEVA [Suspect]
     Active Substance: ERLOTINIB HYDROCHLORIDE
     Indication: LUNG NEOPLASM MALIGNANT
     Route: 048
     Dates: start: 20141202
  4. TARCEVA [Suspect]
     Active Substance: ERLOTINIB HYDROCHLORIDE
     Indication: BRONCHIAL CARCINOMA
     Route: 048
     Dates: start: 20150219
  5. DIAZEPAM. [Concomitant]
     Active Substance: DIAZEPAM
     Route: 048
  6. DOXYCYCLINE. [Concomitant]
     Active Substance: DOXYCYCLINE
     Route: 048
  7. TARCEVA [Suspect]
     Active Substance: ERLOTINIB HYDROCHLORIDE
     Route: 048
     Dates: start: 20160328
  8. VICODIN [Concomitant]
     Active Substance: ACETAMINOPHEN\HYDROCODONE BITARTRATE
  9. FLUOXETINE [Concomitant]
     Active Substance: FLUOXETINE HYDROCHLORIDE
     Dosage: OCCLUSIVE DRESSING TECHNIQUE
     Route: 065
  10. TRIAMCINOLONA [Concomitant]
     Active Substance: TRIAMCINOLONE ACETONIDE
  11. CLONAZEPAM. [Concomitant]
     Active Substance: CLONAZEPAM
     Route: 048
  12. PANTOPRAZOLE [Concomitant]
     Active Substance: PANTOPRAZOLE
     Route: 048
  13. PROCHLORPERAZINE. [Concomitant]
     Active Substance: PROCHLORPERAZINE
     Indication: NAUSEA
     Route: 048
  14. LIDOCAINE/PRILOCAINE [Concomitant]
     Active Substance: LIDOCAINE\PRILOCAINE

REACTIONS (20)
  - Eyelids pruritus [Unknown]
  - Hair texture abnormal [Unknown]
  - Oral pain [Unknown]
  - Dandruff [Unknown]
  - Pain [Unknown]
  - Stomatitis [Unknown]
  - Pruritus [Unknown]
  - Erythema of eyelid [Unknown]
  - Skin fissures [Unknown]
  - Dry eye [Unknown]
  - Oral mucosal blistering [Unknown]
  - Acne [Unknown]
  - Lip dry [Unknown]
  - Eyelid oedema [Unknown]
  - Nasal discomfort [Unknown]
  - Skin exfoliation [Unknown]
  - Rash [Unknown]
  - Headache [Unknown]
  - Nasal dryness [Unknown]
  - Onychoclasis [Unknown]
